FAERS Safety Report 20470866 (Version 1)
Quarter: 2022Q1

REPORT INFORMATION
  Report Type: Report from Study
  Country: US (occurrence: None)
  Receive Date: 20220214
  Receipt Date: 20220214
  Transmission Date: 20220423
  Serious: Yes (Death)
  Sender: FDA-Public Use
  Company Number: 2022A069697

PATIENT
  Sex: Female

DRUGS (1)
  1. FASENRA [Suspect]
     Active Substance: BENRALIZUMAB
     Indication: Asthma
     Dosage: FREQUENCY: INJECT 1 PEN UNDER THE SKIN AT WEEK 0, 4 AND 8, THEN INJECT 1 PEN EVERY 8 WEEKS THEREA...
     Route: 058
     Dates: start: 202109

REACTIONS (1)
  - Death [Fatal]
